FAERS Safety Report 21963201 (Version 3)
Quarter: 2024Q1

REPORT INFORMATION
  Report Type: Spontaneous
  Country: US (occurrence: US)
  Receive Date: 20230207
  Receipt Date: 20240226
  Transmission Date: 20240410
  Serious: No
  Sender: FDA-Public Use
  Company Number: US-PFIZER INC-PV202300023202

PATIENT
  Age: 81 Year
  Sex: Female

DRUGS (3)
  1. IBRANCE [Suspect]
     Active Substance: PALBOCICLIB
     Indication: Breast cancer female
     Dosage: PO Q DAY DAYS 1-21 OF A 28 DAY CYCLE
     Route: 048
     Dates: start: 20220415
  2. IBRANCE [Suspect]
     Active Substance: PALBOCICLIB
     Dosage: PO DAYS 1-21
     Route: 048
     Dates: start: 20220421, end: 20231011
  3. FEMARA [Concomitant]
     Active Substance: LETROZOLE
     Indication: Breast cancer female
     Dosage: DAILY V4.0
     Dates: start: 20220421, end: 20231011

REACTIONS (2)
  - Arthritis [Unknown]
  - Malaise [Unknown]
